FAERS Safety Report 4746453-0 (Version None)
Quarter: 2005Q3

REPORT INFORMATION
  Report Type: 
  Country: None (occurrence: None)
  Receive Date: 20050815
  Receipt Date: 20050728
  Transmission Date: 20060218
  Serious: Yes (Other)
  Sender: FDA-Public Use
  Company Number: EWC050845195

PATIENT
  Age: 15 Year
  Sex: Female

DRUGS (3)
  1. ZYPREXA [Suspect]
  2. FLUOXETINE [Suspect]
  3. RIVATRIL (CLONAZEPAM) [Concomitant]

REACTIONS (1)
  - ELECTROCARDIOGRAM QT CORRECTED INTERVAL PROLONGED [None]
